FAERS Safety Report 21111995 (Version 1)
Quarter: 2022Q3

REPORT INFORMATION
  Report Type: Spontaneous
  Country: IN (occurrence: IN)
  Receive Date: 20220721
  Receipt Date: 20220721
  Transmission Date: 20221027
  Serious: Yes (Other)
  Sender: FDA-Public Use
  Company Number: IN-PFIZER INC-PV202200025340

PATIENT
  Age: 65 Year
  Sex: Female

DRUGS (2)
  1. DACOMITINIB [Suspect]
     Active Substance: DACOMITINIB
     Indication: Non-small cell lung cancer metastatic
     Dosage: 30 MG, CYCLIC (ON 5 DAYS AND 45 MG ON 2 DAYS)
     Route: 048
  2. DACOMITINIB [Suspect]
     Active Substance: DACOMITINIB
     Dosage: 45 MG, CYCLIC (ON 5 DAYS AND 45 MG ON 2 DAYS)

REACTIONS (3)
  - Cerebral infarction [Unknown]
  - Neoplasm progression [Unknown]
  - Off label use [Unknown]
